FAERS Safety Report 12965339 (Version 1)
Quarter: 2016Q4

REPORT INFORMATION
  Report Type: Spontaneous
  Country: US (occurrence: US)
  Receive Date: 20161122
  Receipt Date: 20161122
  Transmission Date: 20170207
  Serious: Yes (Other)
  Sender: FDA-Public Use
  Company Number: US-SA-2016SA210282

PATIENT
  Age: 72 Year
  Sex: Female

DRUGS (1)
  1. CEREZYME [Suspect]
     Active Substance: IMIGLUCERASE
     Indication: GAUCHER^S DISEASE
     Route: 041

REACTIONS (4)
  - Visual acuity reduced [Not Recovered/Not Resolved]
  - Exfoliation syndrome [Not Recovered/Not Resolved]
  - Intraocular lens implant [Recovering/Resolving]
  - Blindness unilateral [Not Recovered/Not Resolved]
